FAERS Safety Report 25715626 (Version 1)
Quarter: 2025Q3

REPORT INFORMATION
  Report Type: Spontaneous
  Country: US (occurrence: None)
  Receive Date: 20250821
  Receipt Date: 20250821
  Transmission Date: 20251021
  Serious: Yes (Hospitalization)
  Sender: FDA-CTU
  Company Number: None

PATIENT
  Sex: Male

DRUGS (21)
  1. MYCOPHENOLIC ACID [Suspect]
     Active Substance: MYCOPHENOLIC ACID
     Indication: Liver transplant
     Dosage: FREQUENCY : TWICE A DAY;?
     Route: 048
     Dates: start: 20210111
  2. TACROLIMUS [Suspect]
     Active Substance: TACROLIMUS
     Indication: Liver transplant
     Dosage: FREQUENCY : TWICE A DAY;?
     Route: 048
     Dates: start: 20201203
  3. ASPIRIN [Concomitant]
     Active Substance: ASPIRIN
  4. IMODIUM A-D [Concomitant]
     Active Substance: LOPERAMIDE HYDROCHLORIDE
  5. LAGEVRIO [Concomitant]
     Active Substance: MOLNUPIRAVIR
  6. GABAPENTIN [Concomitant]
     Active Substance: GABAPENTIN
  7. TACROLIMUS [Concomitant]
     Active Substance: TACROLIMUS
  8. BENZONATATE [Concomitant]
     Active Substance: BENZONATATE
  9. ATOVAQUONE [Concomitant]
     Active Substance: ATOVAQUONE
  10. MESALAMINE [Concomitant]
     Active Substance: MESALAMINE
  11. NIVESTYM [Concomitant]
     Active Substance: FILGRASTIM-AAFI
  12. TYLENOL [Concomitant]
     Active Substance: ACETAMINOPHEN
  13. STELARA [Concomitant]
     Active Substance: USTEKINUMAB
  14. OXYCODONE HYDROCHLORIDE [Concomitant]
     Active Substance: OXYCODONE HYDROCHLORIDE
  15. PANTOPRAZOLE SODIUM [Concomitant]
     Active Substance: PANTOPRAZOLE SODIUM
  16. MAGNESIUM OXIDE [Concomitant]
     Active Substance: MAGNESIUM OXIDE
  17. DOXYCYCLINE [Concomitant]
     Active Substance: DOXYCYCLINE
  18. PREDNISONE [Concomitant]
     Active Substance: PREDNISONE
  19. VITAMIN D [Concomitant]
     Active Substance: VITAMIN D NOS
  20. ESCITALOPRAM OXALATE [Concomitant]
     Active Substance: ESCITALOPRAM OXALATE
  21. SODIUM BICARBONATE [Concomitant]
     Active Substance: SODIUM BICARBONATE

REACTIONS (1)
  - Pneumonia [None]
